FAERS Safety Report 26143963 (Version 1)
Quarter: 2025Q4

REPORT INFORMATION
  Report Type: Spontaneous
  Country: JP (occurrence: JP)
  Receive Date: 20251211
  Receipt Date: 20251211
  Transmission Date: 20260117
  Serious: Yes (Other)
  Sender: ALEXION PHARMACEUTICALS
  Company Number: JP-AstraZeneca-CH-01009121A

PATIENT

DRUGS (2)
  1. KOSELUGO [Suspect]
     Active Substance: SELUMETINIB
     Indication: Neurofibromatosis
     Dosage: UNK
  2. KOSELUGO [Suspect]
     Active Substance: SELUMETINIB
     Indication: Neurofibroma

REACTIONS (1)
  - Serous retinal detachment [Not Recovered/Not Resolved]
